FAERS Safety Report 6624921-4 (Version None)
Quarter: 2010Q1

REPORT INFORMATION
  Report Type: 
  Country: None (occurrence: None)
  Receive Date: 20100310
  Receipt Date: 20090914
  Transmission Date: 20100710
  Serious: No
  Sender: FDA-Public Use
  Company Number: US-BIOGENIDEC-2009BI029575

PATIENT
  Age: 49 Year
  Sex: Female

DRUGS (3)
  1. AVONEX [Suspect]
     Indication: MULTIPLE SCLEROSIS
     Route: 030
     Dates: start: 20000301, end: 20030801
  2. AVONEX [Suspect]
     Route: 030
     Dates: start: 20030801, end: 20050314
  3. AVONEX [Suspect]
     Route: 030
     Dates: start: 20060511

REACTIONS (5)
  - ABDOMINAL DISCOMFORT [None]
  - COLD SWEAT [None]
  - FATIGUE [None]
  - FEELING HOT [None]
  - PAIN [None]
